FAERS Safety Report 8055485-9 (Version None)
Quarter: 2012Q1

REPORT INFORMATION
  Report Type: 
  Country: None (occurrence: None)
  Receive Date: 20120119
  Receipt Date: 20120109
  Transmission Date: 20120608
  Serious: Yes (Hospitalization)
  Sender: FDA-Public Use
  Company Number: TW-JNJFOC-20120101039

PATIENT
  Age: 54 Year
  Sex: Female

DRUGS (2)
  1. ETORICOXIB [Suspect]
     Indication: PAIN
     Route: 048
     Dates: start: 20090424, end: 20090429
  2. ULTRACET [Suspect]
     Indication: PAIN
     Dosage: 1 TABLET TWICE A DAY
     Route: 048
     Dates: start: 20090424, end: 20090429

REACTIONS (2)
  - CELLULITIS [None]
  - SKIN REACTION [None]
